FAERS Safety Report 18227959 (Version 4)
Quarter: 2021Q1

REPORT INFORMATION
  Report Type: Report from Study
  Country: GB (occurrence: GB)
  Receive Date: 20200903
  Receipt Date: 20210111
  Transmission Date: 20210419
  Serious: Yes (Hospitalization, Other)
  Sender: FDA-Public Use
  Company Number: GB-MYLANLABS-2020M1071439

PATIENT
  Age: 54 Year
  Sex: Female

DRUGS (32)
  1. TRASTUZUMAB. [Suspect]
     Active Substance: TRASTUZUMAB
     Dosage: 462 MILLIGRAM, 3XW
     Route: 042
     Dates: start: 20171020, end: 20171201
  2. TRASTUZUMAB. [Suspect]
     Active Substance: TRASTUZUMAB
     Dosage: 357 MILLIGRAM, Q3W
     Route: 042
     Dates: start: 20161129, end: 20170821
  3. TRASTUZUMAB. [Suspect]
     Active Substance: TRASTUZUMAB
     Dosage: 609 MILLIGRAM, 3XW
     Route: 042
     Dates: start: 20170928, end: 20170928
  4. DOCETAXEL. [Suspect]
     Active Substance: DOCETAXEL
     Dosage: 120 MILLIGRAM, 3XW
     Route: 042
     Dates: start: 20170928
  5. PERTUZUMAB. [Suspect]
     Active Substance: PERTUZUMAB
     Indication: BREAST CANCER
     Dosage: 840 MILLIGRAM, QD
     Route: 042
     Dates: start: 20160211, end: 20160211
  6. PHOSPHATE SANDOZ [Concomitant]
     Active Substance: SODIUM PHOSPHATE, MONOBASIC, ANHYDROUS
     Dosage: 0.5 DAY
     Route: 048
     Dates: start: 20161106
  7. TRASTUZUMAB. [Suspect]
     Active Substance: TRASTUZUMAB
     Dosage: 672 MILLIGRAM, 3XW
     Route: 042
     Dates: start: 20160217, end: 20160217
  8. TRASTUZUMAB. [Suspect]
     Active Substance: TRASTUZUMAB
     Dosage: 504 MILLIGRAM, Q3W
     Route: 042
     Dates: start: 20160613, end: 20180218
  9. LANSOPRAZOLE. [Concomitant]
     Active Substance: LANSOPRAZOLE
     Indication: PRODUCT USED FOR UNKNOWN INDICATION
     Dosage: 30 MILLIGRAM, QD
     Route: 048
     Dates: start: 20170201
  10. COLECALCIFEROL [Concomitant]
     Active Substance: CHOLECALCIFEROL
     Dosage: 500 MILLIGRAM, QD
     Route: 048
     Dates: start: 201611, end: 20171201
  11. TRASTUZUMAB. [Suspect]
     Active Substance: TRASTUZUMAB
     Dosage: 315 MILLIGRAM, 3XW
     Route: 042
     Dates: start: 20161129, end: 20170821
  12. CARBOPLATIN. [Suspect]
     Active Substance: CARBOPLATIN
     Indication: BREAST CANCER METASTATIC
     Dosage: 630 MILLIGRAM, Q3W
     Route: 042
     Dates: start: 20170928
  13. PERTUZUMAB. [Suspect]
     Active Substance: PERTUZUMAB
     Dosage: 420 MILLIGRAM, Q3W
     Route: 042
     Dates: start: 20160303, end: 20170821
  14. CYCLOPHOSPHAMIDE. [Suspect]
     Active Substance: CYCLOPHOSPHAMIDE
     Indication: BREAST CANCER METASTATIC
     Dosage: 1200 MILLIGRAM, Q3W
     Route: 042
     Dates: start: 20170817, end: 20170908
  15. ENOXAPARIN [Concomitant]
     Active Substance: ENOXAPARIN
     Indication: PRODUCT USED FOR UNKNOWN INDICATION
     Dosage: 90 MILLIGRAM, QD
     Route: 058
     Dates: start: 201701
  16. LANSOPRAZOLE. [Concomitant]
     Active Substance: LANSOPRAZOLE
     Dosage: 30 MILLIGRAM, QD
     Route: 048
     Dates: end: 20171231
  17. FORTISIP [Concomitant]
     Active Substance: CARBOHYDRATES\FATTY ACIDS\MINERALS\PROTEIN\VITAMINS
     Indication: PRODUCT USED FOR UNKNOWN INDICATION
     Dosage: UNK
     Route: 065
  18. TRASTUZUMAB. [Suspect]
     Active Substance: TRASTUZUMAB
     Indication: BREAST CANCER METASTATIC
     Dosage: 462 MILLIGRAM, QD
     Route: 042
     Dates: start: 20160212, end: 20160212
  19. PERTUZUMAB. [Suspect]
     Active Substance: PERTUZUMAB
     Dosage: 420 MILLIGRAM, 3XW
     Route: 042
     Dates: start: 20171020, end: 20171201
  20. OXYCODONE [Concomitant]
     Active Substance: OXYCODONE
     Dosage: 10 MILLIGRAM
     Route: 048
     Dates: end: 20171201
  21. MEROPENEM. [Concomitant]
     Active Substance: MEROPENEM
     Indication: PRODUCT USED FOR UNKNOWN INDICATION
     Dosage: 1 GRAM
     Route: 042
     Dates: start: 20170828, end: 20170828
  22. TRASTUZUMAB. [Suspect]
     Active Substance: TRASTUZUMAB
     Dosage: 462 MILLIGRAM, QD
     Route: 042
     Dates: start: 20160212, end: 20160212
  23. MACROGOL [Concomitant]
     Active Substance: POLYETHYLENE GLYCOLS
     Indication: CONSTIPATION
     Dosage: 0.5/DAY
     Route: 048
     Dates: end: 20161031
  24. PERTUZUMAB. [Suspect]
     Active Substance: PERTUZUMAB
     Indication: BREAST CANCER METASTATIC
     Dosage: 420 MILLIGRAM, QW
     Route: 042
     Dates: start: 20160303, end: 20170821
  25. PERTUZUMAB. [Suspect]
     Active Substance: PERTUZUMAB
     Dosage: 840 MILLIGRAM, 3XW
     Route: 042
     Dates: start: 20170928, end: 20170928
  26. SODIUM PICOSULPHATE [Concomitant]
     Active Substance: SODIUM PICOSULFATE
     Indication: UROSEPSIS
     Dosage: 10 MILLIGRAM, QD
     Route: 048
     Dates: start: 201709, end: 20171201
  27. EPIRUBICIN [Suspect]
     Active Substance: EPIRUBICIN
     Indication: BREAST CANCER METASTATIC
     Dosage: 150 MILLIGRAM, Q3W
     Route: 042
     Dates: start: 20170817, end: 20170908
  28. TRASTUZUMAB. [Suspect]
     Active Substance: TRASTUZUMAB
     Dosage: 357 MILLIGRAM, 3XW
     Route: 042
     Dates: start: 20160303, end: 20161108
  29. DOCETAXEL. [Suspect]
     Active Substance: DOCETAXEL
     Indication: BREAST CANCER METASTATIC
     Dosage: NO OF CYCLES PER REGIMEN 6
     Route: 042
     Dates: start: 20160212, end: 20160526
  30. DOCETAXEL. [Suspect]
     Active Substance: DOCETAXEL
     Dosage: 150 MILLIGRAM, 3XW
     Route: 042
     Dates: start: 20160217, end: 20160602
  31. PERTUZUMAB. [Suspect]
     Active Substance: PERTUZUMAB
     Dosage: 420 MILLIGRAM, 3XW
     Route: 042
     Dates: start: 20160310, end: 20170218
  32. TRIMETHOPRIM. [Concomitant]
     Active Substance: TRIMETHOPRIM
     Indication: PNEUMONIA
     Dosage: 100 MILLIGRAM, QD
     Route: 048
     Dates: start: 20170831, end: 20170903

REACTIONS (9)
  - Lower respiratory tract infection [Recovered/Resolved]
  - Urosepsis [Recovered/Resolved]
  - Confusional state [Recovered/Resolved]
  - Respiratory tract infection [Recovered/Resolved]
  - Pneumonia [Recovered/Resolved]
  - Diarrhoea [Recovered/Resolved]
  - Neuropathy peripheral [Recovered/Resolved]
  - Dyspnoea [Recovering/Resolving]
  - Back pain [Recovered/Resolved]

NARRATIVE: CASE EVENT DATE: 20160626
